FAERS Safety Report 14669035 (Version 4)
Quarter: 2018Q2

REPORT INFORMATION
  Report Type: Spontaneous
  Country: JP (occurrence: JP)
  Receive Date: 20180322
  Receipt Date: 20180626
  Transmission Date: 20180711
  Serious: Yes (Death, Hospitalization)
  Sender: FDA-Public Use
  Company Number: JP-ASTRAZENECA-2018SE34064

PATIENT
  Age: 28990 Day
  Sex: Female
  Weight: 41 kg

DRUGS (9)
  1. CINAL [Concomitant]
     Active Substance: ASCORBIC ACID\CALCIUM PANTOTHENATE
     Indication: HYPOVITAMINOSIS
     Route: 048
     Dates: end: 20180212
  2. AMLODIPINE [Concomitant]
     Active Substance: AMLODIPINE BESYLATE
     Indication: ESSENTIAL HYPERTENSION
     Route: 048
     Dates: end: 20180212
  3. MAGMITT [Concomitant]
     Active Substance: MAGNESIUM OXIDE
     Indication: CONSTIPATION
     Route: 048
     Dates: end: 20180212
  4. SENNOSIDE [Concomitant]
     Active Substance: SENNOSIDES
     Indication: CONSTIPATION
     Route: 048
     Dates: end: 20180212
  5. TRANSAMIN [Concomitant]
     Active Substance: TRANEXAMIC ACID
     Indication: NON-SMALL CELL LUNG CANCER
     Route: 048
     Dates: start: 20180203, end: 20180212
  6. IRESSA [Suspect]
     Active Substance: GEFITINIB
     Indication: NON-SMALL CELL LUNG CANCER
     Route: 048
     Dates: start: 20180118, end: 20180205
  7. GASCON [Concomitant]
     Active Substance: DIMETHICONE
     Indication: CONSTIPATION
     Route: 048
     Dates: end: 20180212
  8. ETIZOLAM [Concomitant]
     Active Substance: ETIZOLAM
     Indication: CEREBRAL INFARCTION
     Route: 048
     Dates: end: 20180212
  9. ADONA [Concomitant]
     Active Substance: CARBAZOCHROME SODIUM SULFONATE
     Indication: NON-SMALL CELL LUNG CANCER
     Route: 048
     Dates: start: 20180203, end: 20180208

REACTIONS (4)
  - Pneumonia [Fatal]
  - Total lung capacity decreased [Recovered/Resolved]
  - Dysgeusia [Recovering/Resolving]
  - Hypoxia [Recovered/Resolved]

NARRATIVE: CASE EVENT DATE: 20180201
